FAERS Safety Report 7073298-1 (Version None)
Quarter: 2010Q4

REPORT INFORMATION
  Report Type: 
  Country: None (occurrence: None)
  Receive Date: 20101029
  Receipt Date: 20100525
  Transmission Date: 20110411
  Serious: No
  Sender: FDA-Public Use
  Company Number: A0861227A

PATIENT
  Age: 72 Year
  Sex: Female

DRUGS (22)
  1. ADVAIR DISKUS 100/50 [Suspect]
     Indication: ASTHMA
     Dosage: 1PUFF TWICE PER DAY
     Route: 055
     Dates: end: 20100507
  2. FLONASE [Suspect]
     Route: 045
     Dates: end: 20100507
  3. GLIMEPIRIDE [Concomitant]
  4. NORITATE [Concomitant]
  5. NITROGLYCERIN [Concomitant]
  6. ASPIRIN [Concomitant]
  7. METOPROLOL [Concomitant]
  8. ACIPHEX [Concomitant]
  9. VYTORIN [Concomitant]
  10. SINGULAIR [Concomitant]
  11. ZYRTEC [Concomitant]
  12. MUCINEX [Concomitant]
  13. FOSAMAX [Concomitant]
  14. TERAFLU [Concomitant]
  15. MAXAIR [Concomitant]
  16. HYDRALAZINE [Concomitant]
  17. TRAMADOL [Concomitant]
  18. VITAMIN D [Concomitant]
  19. LOVAZA [Concomitant]
  20. UNKNOWN MEDICATION [Concomitant]
  21. BIOTIN [Concomitant]
  22. VITAMIN B COMPLEX CAP [Concomitant]

REACTIONS (2)
  - CONSTIPATION [None]
  - DRUG INEFFECTIVE [None]
